FAERS Safety Report 6431668-6 (Version None)
Quarter: 2009Q4

REPORT INFORMATION
  Report Type: 
  Country: None (occurrence: None)
  Receive Date: 20091103
  Receipt Date: 20091027
  Transmission Date: 20100525
  Serious: Yes (Death)
  Sender: FDA-Public Use
  Company Number: ADR49682009

PATIENT
  Age: 30 Year
  Sex: Male

DRUGS (3)
  1. SERTRALINE HCL [Suspect]
     Indication: DYSTHYMIC DISORDER
     Dosage: 100 MG; ORAL
     Route: 048
     Dates: start: 20081101, end: 20090301
  2. MONTELUKAST SODIUM [Concomitant]
  3. QUETIAPINE [Concomitant]

REACTIONS (3)
  - ALCOHOL INTERACTION [None]
  - ALCOHOL POISONING [None]
  - SUDDEN DEATH [None]
